FAERS Safety Report 5047459-7 (Version None)
Quarter: 2006Q3

REPORT INFORMATION
  Report Type: 
  Country: None (occurrence: None)
  Receive Date: 20060711
  Receipt Date: 20060630
  Transmission Date: 20061208
  Serious: Yes (Hospitalization)
  Sender: FDA-Public Use
  Company Number: FR-JNJFOC-20060700088

PATIENT
  Age: 82 Year
  Sex: Female

DRUGS (7)
  1. MOTILIUM [Suspect]
     Indication: DRUG USE FOR UNKNOWN INDICATION
     Route: 048
     Dates: start: 20060519, end: 20060524
  2. TRAMADOL HCL [Suspect]
     Indication: DRUG USE FOR UNKNOWN INDICATION
     Route: 048
     Dates: start: 20060519, end: 20060524
  3. PARACETAMOL [Concomitant]
     Route: 065
     Dates: start: 20060519
  4. MORPHINE SULFATE [Concomitant]
     Route: 065
     Dates: start: 20060520, end: 20060521
  5. SERESTA [Concomitant]
     Route: 065
  6. FOSAMAX [Concomitant]
     Route: 065
  7. LOVENOX [Concomitant]
     Route: 065
     Dates: end: 20060526

REACTIONS (2)
  - CONFUSIONAL STATE [None]
  - HYPONATRAEMIA [None]
